FAERS Safety Report 4905910-4 (Version None)
Quarter: 2006Q1

REPORT INFORMATION
  Report Type: 
  Country: None (occurrence: None)
  Receive Date: 20060113
  Receipt Date: 20051212
  Transmission Date: 20060701
  Serious: No
  Sender: FDA-Public Use
  Company Number: 2005SP004359

PATIENT
  Age: 42 Year
  Sex: Male

DRUGS (4)
  1. LUNESTA [Suspect]
     Indication: BACK PAIN
     Dosage: 1 MG;HS;ORAL
     Route: 048
     Dates: start: 20051211, end: 20050101
  2. LUNESTA [Suspect]
     Indication: INSOMNIA
     Dosage: 1 MG;HS;ORAL
     Route: 048
     Dates: start: 20051211, end: 20050101
  3. LUNESTA [Suspect]
     Indication: BACK PAIN
     Dosage: 1 MG;HS;ORAL
     Route: 048
     Dates: start: 20051211, end: 20050101
  4. LUNESTA [Suspect]
     Indication: INSOMNIA
     Dosage: 1 MG;HS;ORAL
     Route: 048
     Dates: start: 20051211, end: 20050101

REACTIONS (6)
  - ANXIETY [None]
  - DRUG INEFFECTIVE [None]
  - HEADACHE [None]
  - HYPERHIDROSIS [None]
  - INSOMNIA [None]
  - NAUSEA [None]
